FAERS Safety Report 12279320 (Version 6)
Quarter: 2016Q2

REPORT INFORMATION
  Report Type: Report from Study
  Country: BR (occurrence: BR)
  Receive Date: 20160418
  Receipt Date: 20160620
  Transmission Date: 20160815
  Serious: Yes (Life-Threatening, Other)
  Sender: FDA-Public Use
  Company Number: PHHY2016BR050416

PATIENT
  Sex: Male
  Weight: 86 kg

DRUGS (4)
  1. AMIODARONE [Concomitant]
     Active Substance: AMIODARONE
     Indication: CARDIAC DISORDER
     Dosage: 1 DF, BID (4 YEARS AGO)
     Route: 048
  2. FORASEQ [Suspect]
     Active Substance: BUDESONIDE\FORMOTEROL FUMARATE
     Indication: EMPHYSEMA
     Dosage: 1 DF (BUDESONIDE 400 UG AND FORMETEROL FUMARATE 12 UG), BID (2 YEARS AGO APPROXIMATELY)
     Route: 055
  3. FORASEQ [Suspect]
     Active Substance: BUDESONIDE\FORMOTEROL FUMARATE
     Indication: DYSPNOEA
     Dosage: 1 DF, BID  (BUDESONIDE 400 UG AND FORMETEROL FUMARATE 12 UG) (2 OR 3 CAPSULES, NOT CLARIFIED)
     Route: 055
  4. FORASEQ [Suspect]
     Active Substance: BUDESONIDE\FORMOTEROL FUMARATE
     Dosage: 2, 3 OR 4 DF (USES DEPENDING ON HIS ACTIVITY, EVERY TWO TO THREE CAPSULES A DAY)
     Route: 055

REACTIONS (7)
  - Scar [Unknown]
  - Dyspnoea [Unknown]
  - Product physical issue [Unknown]
  - Skin haemorrhage [Not Recovered/Not Resolved]
  - Erythema [Not Recovered/Not Resolved]
  - General physical condition abnormal [Unknown]
  - Wrong technique in product usage process [Unknown]
